FAERS Safety Report 9627045 (Version 3)
Quarter: 2013Q4

REPORT INFORMATION
  Report Type: Spontaneous
  Country: US (occurrence: US)
  Receive Date: 20131016
  Receipt Date: 20131022
  Transmission Date: 20140711
  Serious: Yes (Hospitalization, Other)
  Sender: FDA-Public Use
  Company Number: US-INCYTE CORPORATION-2013IN001436

PATIENT
  Age: 59 Year
  Sex: Male
  Weight: 105.67 kg

DRUGS (9)
  1. JAKAFI [Suspect]
     Indication: MYELOFIBROSIS
     Dosage: 15 MG, BID
     Route: 048
     Dates: start: 20130607, end: 20130904
  2. LASIX [Concomitant]
     Dosage: 20 MG, UNK
  3. PREDNISONE [Concomitant]
     Dosage: 10 MG, UNK
  4. POTASSIUM CHLORIDE [Concomitant]
     Dosage: 10 MEQ, UNK
  5. DIGOXIN [Concomitant]
     Dosage: 12.5 MCG, UNK
  6. TOPROL [Concomitant]
     Dosage: 100 MG, BID
  7. TOPROL [Concomitant]
     Dosage: 50 MG, BID
  8. ALLOPURINOL [Concomitant]
     Dosage: 100 MG, UNK
  9. FOLIC ACID [Concomitant]

REACTIONS (14)
  - Atrial fibrillation [Recovered/Resolved]
  - Bone marrow failure [Unknown]
  - Anaemia [Unknown]
  - Thrombocytopenia [Unknown]
  - Bradycardia [Unknown]
  - Diarrhoea [Unknown]
  - Rash pruritic [Unknown]
  - Bronchitis [Unknown]
  - Sinusitis [Unknown]
  - Epistaxis [Recovered/Resolved]
  - Gout [Recovering/Resolving]
  - Asthenia [Unknown]
  - Fatigue [Unknown]
  - Memory impairment [Unknown]
